FAERS Safety Report 9086536 (Version 1)
Quarter: 2013Q1

REPORT INFORMATION
  Report Type: Report from Study
  Country: US (occurrence: US)
  Receive Date: 20130131
  Receipt Date: 20130131
  Transmission Date: 20140127
  Serious: No
  Sender: FDA-Public Use
  Company Number: US-ABBOTT-12P-163-0975006-00

PATIENT
  Sex: Male

DRUGS (1)
  1. HUMIRA [Suspect]
     Indication: CROHN^S DISEASE
     Route: 058
     Dates: start: 201207, end: 201208

REACTIONS (6)
  - Fatigue [Recovering/Resolving]
  - Mood altered [Recovering/Resolving]
  - Blood creatinine increased [Unknown]
  - Anger [Recovering/Resolving]
  - Weight increased [Recovering/Resolving]
  - Mood swings [Recovering/Resolving]
